FAERS Safety Report 6228918-8 (Version None)
Quarter: 2009Q2

REPORT INFORMATION
  Report Type: 
  Country: None (occurrence: None)
  Receive Date: 20090615
  Receipt Date: 20070516
  Transmission Date: 20091009
  Serious: Yes (Other)
  Sender: FDA-Public Use
  Company Number: US-ASTRAZENECA-2006UW24636

PATIENT
  Age: 13407 Day
  Sex: Female
  Weight: 74.4 kg

DRUGS (34)
  1. SEROQUEL [Suspect]
     Indication: BIPOLAR DISORDER
     Dosage: 25 TO 600 MG
     Route: 048
     Dates: start: 20020713
  2. SEROQUEL [Suspect]
     Indication: SCHIZOPHRENIA
     Dosage: 25 TO 600 MG
     Route: 048
     Dates: start: 20020713
  3. GEODON [Concomitant]
     Dosage: 20 TO 80 MG
     Dates: start: 20020918
  4. RISPERDAL [Concomitant]
     Dates: start: 20060101
  5. ZYPREXA [Concomitant]
     Dosage: 15 TO 30 MG
     Dates: start: 20030630
  6. CELEXA [Concomitant]
     Route: 048
     Dates: start: 20020713
  7. ACCUPRIL [Concomitant]
     Route: 048
     Dates: start: 20020713
  8. KLONOPIN [Concomitant]
     Dosage: 0.5 TO 1.5 MG
     Route: 048
     Dates: start: 20020713
  9. ATIVAN [Concomitant]
     Indication: ANXIETY
     Dosage: 0.5 TO 3.0 MG
     Route: 048
     Dates: start: 19921103
  10. ATIVAN [Concomitant]
     Indication: INSOMNIA
     Dosage: 0.5 TO 3.0 MG
     Route: 048
     Dates: start: 19921103
  11. ATIVAN [Concomitant]
     Indication: AGITATION
     Dosage: 0.5 TO 3.0 MG
     Route: 048
     Dates: start: 19921103
  12. AMBIEN [Concomitant]
     Dosage: 5 TO 10 MG
     Dates: start: 20050916
  13. TOPAMAX [Concomitant]
     Dosage: 200 TO 300 MG
     Dates: start: 20030609
  14. RESTORIL [Concomitant]
     Dosage: 15TO 30 MG
     Dates: start: 20020918
  15. RISPERDAL [Concomitant]
     Indication: PSYCHOTIC DISORDER
     Dosage: 2 TO 6 MG
     Route: 048
     Dates: start: 20020920
  16. LEXAPRO [Concomitant]
     Dosage: 10 TO 30 MG
     Dates: start: 20030708
  17. HALDOL [Concomitant]
     Indication: PSYCHOMOTOR HYPERACTIVITY
     Dosage: 2 TO 5 MG
     Route: 048
     Dates: start: 20020423
  18. COGENTIN [Concomitant]
     Dosage: 1 TO 2 MG
     Dates: start: 20030303
  19. HALDOL [Concomitant]
     Dosage: STRENGTH- 5 MG/DL, DOSE-4MG
     Route: 030
     Dates: start: 20020713
  20. FLURAZEPAM [Concomitant]
     Dates: start: 20021202
  21. ASPIRIN [Concomitant]
     Indication: CARDIOVASCULAR EVENT PROPHYLAXIS
     Route: 048
     Dates: start: 20050917
  22. CLONIDINE HCL [Concomitant]
     Dosage: 0.1 TO 0.3 MG
     Dates: start: 20020423
  23. ARIPIPRAZOLE [Concomitant]
     Dates: start: 20050916
  24. VALPROIC ACID SYRUP [Concomitant]
     Dates: start: 20050916
  25. DIVALPROEX SODIUM [Concomitant]
     Indication: PSYCHOTIC DISORDER
     Dates: start: 20050916
  26. AVANDIA [Concomitant]
     Indication: DIABETES MELLITUS
     Dates: start: 20050917
  27. ACETAMINOPHEN [Concomitant]
     Dates: start: 20020128
  28. DIPHENHYDRAMINE HCL [Concomitant]
     Dosage: 25 TO 50 MG
     Dates: start: 20020921
  29. THIOTHIXENE [Concomitant]
     Dosage: 5 TO 10 MG
     Dates: start: 20030628
  30. SYNTHROID [Concomitant]
     Indication: HYPOTHYROIDISM
     Dosage: 25 MCG/MG ONCE A DAY
     Route: 048
     Dates: start: 20051004
  31. TRICOR [Concomitant]
     Dosage: 145 TO 160 MG
     Dates: start: 20040324
  32. TRAZODONE HCL [Concomitant]
     Dates: start: 20000125
  33. TRILEPTAL [Concomitant]
     Route: 048
     Dates: start: 20020713
  34. LIPITOR [Concomitant]
     Indication: HYPERLIPIDAEMIA
     Dosage: 10 TO 20 MG
     Route: 048
     Dates: start: 20050917

REACTIONS (3)
  - DIABETES MELLITUS [None]
  - DIABETIC RETINOPATHY [None]
  - TYPE 2 DIABETES MELLITUS [None]
